FAERS Safety Report 6158162-4 (Version None)
Quarter: 2009Q2

REPORT INFORMATION
  Report Type: 
  Country: None (occurrence: None)
  Receive Date: 20090417
  Receipt Date: 20090415
  Transmission Date: 20091009
  Serious: Yes (Other)
  Sender: FDA-Public Use
  Company Number: US-BAYER-200830357NA

PATIENT
  Age: 45 Year
  Sex: Female
  Weight: 73 kg

DRUGS (1)
  1. YAZ [Suspect]
     Indication: PROPHYLAXIS
     Dosage: ONE TABLET PER DAY
     Route: 048
     Dates: start: 20080703, end: 20080701

REACTIONS (10)
  - ABDOMINAL PAIN [None]
  - ABNORMAL WITHDRAWAL BLEEDING [None]
  - ANOREXIA [None]
  - ANXIETY [None]
  - BEDRIDDEN [None]
  - INSOMNIA [None]
  - METRORRHAGIA [None]
  - NO ADVERSE EVENT [None]
  - PALPITATIONS [None]
  - SUICIDAL IDEATION [None]
